FAERS Safety Report 5688326-5 (Version None)
Quarter: 2008Q1

REPORT INFORMATION
  Report Type: 
  Country: None (occurrence: None)
  Receive Date: 20080328
  Receipt Date: 20080328
  Transmission Date: 20080703
  Serious: No
  Sender: FDA-Public Use
  Company Number: None

PATIENT
  Sex: Female
  Weight: 79.3795 kg

DRUGS (2)
  1. ZETIA [Suspect]
     Indication: BLOOD CHOLESTEROL INCREASED
     Dates: start: 20070101, end: 20071015
  2. ZETIA [Suspect]
     Indication: CEREBROVASCULAR ACCIDENT
     Dates: start: 20070101, end: 20071015

REACTIONS (7)
  - EAR PAIN [None]
  - FALL [None]
  - HEADACHE [None]
  - MUSCULAR WEAKNESS [None]
  - MUSCULOSKELETAL STIFFNESS [None]
  - PAIN [None]
  - ROAD TRAFFIC ACCIDENT [None]
